FAERS Safety Report 9512802 (Version 1)
Quarter: 2013Q3

REPORT INFORMATION
  Report Type: Spontaneous
  Country: US (occurrence: US)
  Receive Date: 20130910
  Receipt Date: 20130910
  Transmission Date: 20140515
  Serious: No
  Sender: FDA-Public Use
  Company Number: US-ASTELLAS-2013US007529

PATIENT
  Sex: Male

DRUGS (1)
  1. XTANDI [Suspect]
     Indication: PROSTATE CANCER
     Dosage: 120 MG, UID/QD
     Route: 048

REACTIONS (7)
  - Incorrect dose administered [Unknown]
  - Early satiety [Unknown]
  - Weight decreased [Unknown]
  - Decreased appetite [Unknown]
  - Nausea [Unknown]
  - Parosmia [Unknown]
  - Constipation [Unknown]
